FAERS Safety Report 24646978 (Version 1)
Quarter: 2024Q4

REPORT INFORMATION
  Report Type: Other
  Country: US (occurrence: US)
  Receive Date: 20241121
  Receipt Date: 20241121
  Transmission Date: 20250114
  Serious: Yes (Other)
  Sender: ZHEJIANG YONGTAI
  Company Number: US-Zhejiang Yongtai pharmaceuticals Co..,Ltd.-2165585

PATIENT

DRUGS (4)
  1. GABAPENTIN [Suspect]
     Active Substance: GABAPENTIN
     Indication: Foetal exposure during pregnancy
  2. ESCITALOPRAM [Suspect]
     Active Substance: ESCITALOPRAM OXALATE
  3. METHADONE [Suspect]
     Active Substance: METHADONE HYDROCHLORIDE
  4. CLONAZEPAM [Suspect]
     Active Substance: CLONAZEPAM

REACTIONS (3)
  - Hypertonia neonatal [Unknown]
  - Foetal exposure during pregnancy [Unknown]
  - Infantile back arching [Unknown]
